FAERS Safety Report 14227969 (Version 2)
Quarter: 2017Q4

REPORT INFORMATION
  Report Type: Spontaneous
  Country: US (occurrence: US)
  Receive Date: 20171127
  Receipt Date: 20171204
  Transmission Date: 20180321
  Serious: Yes (Hospitalization)
  Sender: FDA-Public Use
  Company Number: US-BAUSCH-BL-2017-032276

PATIENT
  Sex: Male

DRUGS (1)
  1. XIFAXAN [Suspect]
     Active Substance: RIFAXIMIN
     Indication: HEPATIC ENCEPHALOPATHY
     Route: 048
     Dates: start: 201604

REACTIONS (7)
  - Ammonia increased [Unknown]
  - Hepatic encephalopathy [Unknown]
  - Treatment noncompliance [Unknown]
  - Mobility decreased [Unknown]
  - Fall [Unknown]
  - Mental status changes [Unknown]
  - Lethargy [Unknown]

NARRATIVE: CASE EVENT DATE: 2016
